FAERS Safety Report 11446317 (Version 1)
Quarter: 2015Q3

REPORT INFORMATION
  Report Type: Spontaneous
  Country: US (occurrence: US)
  Receive Date: 20150831
  Receipt Date: 20150831
  Transmission Date: 20151125
  Serious: No
  Sender: FDA-Public Use
  Company Number: US-ELI_LILLY_AND_COMPANY-US200810007685

PATIENT
  Age: 58 Year
  Sex: Male

DRUGS (12)
  1. CYMBALTA [Suspect]
     Active Substance: DULOXETINE HYDROCHLORIDE
     Indication: DEPRESSION
     Dosage: 30 MG, UNK
     Dates: start: 200808, end: 20081014
  2. ALLOPURINOL. [Concomitant]
     Active Substance: ALLOPURINOL
     Dosage: 300 MG, UNK
  3. FLORINEF ACETATE [Concomitant]
     Active Substance: FLUDROCORTISONE ACETATE
  4. ZAMACORT [Concomitant]
     Dosage: UNK, 2/D
  5. RHINOCORT [Concomitant]
     Active Substance: BUDESONIDE
  6. CYMBALTA [Suspect]
     Active Substance: DULOXETINE HYDROCHLORIDE
     Dosage: 60 MG, DAILY (1/D)
     Dates: start: 20081015
  7. FOLIC ACID. [Concomitant]
     Active Substance: FOLIC ACID
  8. ZOCOR [Concomitant]
     Active Substance: SIMVASTATIN
     Dosage: 30 MG, UNK
  9. COUMADIN [Concomitant]
     Active Substance: WARFARIN SODIUM
     Dosage: 7.5 MG, UNK
     Dates: start: 1999
  10. SPIRIVA [Concomitant]
     Active Substance: TIOTROPIUM BROMIDE MONOHYDRATE
  11. CELEBREX [Concomitant]
     Active Substance: CELECOXIB
  12. LISINOPRIL. [Concomitant]
     Active Substance: LISINOPRIL
     Indication: HYPERTENSION
     Dosage: 40 MG, UNK

REACTIONS (4)
  - Limb injury [Recovered/Resolved]
  - Mental impairment [Recovered/Resolved]
  - Frustration [Recovered/Resolved]
  - Feeling abnormal [Recovered/Resolved]

NARRATIVE: CASE EVENT DATE: 200810
